FAERS Safety Report 4743790-0 (Version None)
Quarter: 2005Q3

REPORT INFORMATION
  Report Type: 
  Country: None (occurrence: None)
  Receive Date: 20050809
  Receipt Date: 20050727
  Transmission Date: 20060218
  Serious: Yes (Death)
  Sender: FDA-Public Use
  Company Number: 2005FR-00157

PATIENT
  Age: 65 Year
  Sex: Female

DRUGS (6)
  1. ANADIN (ASPIRIN, CAFFEINE + QUININE) [Suspect]
  2. EFFEXOR [Concomitant]
  3. ASPIRIN [Concomitant]
  4. ATENOLOL [Concomitant]
  5. FUROSEMIDE [Concomitant]
  6. LANSOPRAZOLE [Concomitant]

REACTIONS (7)
  - ABNORMAL BEHAVIOUR [None]
  - COMPLETED SUICIDE [None]
  - CORONARY ARTERY DISEASE [None]
  - HEPATIC FAILURE [None]
  - HEPATIC NECROSIS [None]
  - MALAISE [None]
  - OVERDOSE [None]
